FAERS Safety Report 21196392 (Version 1)
Quarter: 2022Q3

REPORT INFORMATION
  Report Type: Spontaneous
  Country: US (occurrence: US)
  Receive Date: 20220810
  Receipt Date: 20220810
  Transmission Date: 20221027
  Serious: No
  Sender: FDA-Public Use
  Company Number: US-Blueprint Medicines Corporation-327

PATIENT
  Sex: Male

DRUGS (1)
  1. AYVAKIT [Suspect]
     Active Substance: AVAPRITINIB
     Indication: Systemic mastocytosis
     Dosage: 100MG
     Route: 048
     Dates: start: 20220630

REACTIONS (8)
  - Malaise [Unknown]
  - Toothache [Unknown]
  - Pain in jaw [Unknown]
  - Pain [Unknown]
  - Testicular oedema [Unknown]
  - Eyelid oedema [Unknown]
  - Nausea [Unknown]
  - Vomiting [Unknown]
